FAERS Safety Report 8546200-0 (Version None)
Quarter: 2012Q3

REPORT INFORMATION
  Report Type: 
  Country: None (occurrence: None)
  Receive Date: 20120727
  Receipt Date: 20120724
  Transmission Date: 20120928
  Serious: Yes (Death)
  Sender: FDA-Public Use
  Company Number: PHHY2012MA063740

PATIENT
  Age: 71 Year
  Sex: Male

DRUGS (2)
  1. AZATHIOPRINE [Suspect]
     Indication: PEMPHIGUS
     Dosage: 100 MG, UNK
  2. PREDNISOLONE TAB [Suspect]
     Indication: PEMPHIGUS
     Dosage: 10 MG, UNK

REACTIONS (8)
  - NODULE [None]
  - PSYCHOMOTOR RETARDATION [None]
  - CONDITION AGGRAVATED [None]
  - CRYPTOCOCCOSIS [None]
  - LOSS OF CONSCIOUSNESS [None]
  - DISORIENTATION [None]
  - DISSEMINATED CRYPTOCOCCOSIS [None]
  - INFECTION [None]
